FAERS Safety Report 8234334-X (Version None)
Quarter: 2012Q1

REPORT INFORMATION
  Report Type: 
  Country: None (occurrence: None)
  Receive Date: 20120326
  Receipt Date: 20120322
  Transmission Date: 20120608
  Serious: Yes (Other)
  Sender: FDA-Public Use
  Company Number: SE-ROCHE-1051447

PATIENT
  Age: 73 Year
  Sex: Female

DRUGS (13)
  1. SEREVENT [Concomitant]
     Route: 055
  2. AMLODIPINE [Concomitant]
  3. NITROGLYCERIN [Concomitant]
     Route: 060
  4. LAKTULOS [Concomitant]
     Dosage: DOSE: 670 MG/ML
     Route: 048
  5. PULMICORT [Concomitant]
     Route: 055
  6. METFORMIN HCL [Concomitant]
  7. BETAMETHASONE [Suspect]
     Indication: PRODUCT USED FOR UNKNOWN INDICATION
     Route: 048
     Dates: start: 20120301
  8. ENALAPRIL MALEATE [Concomitant]
  9. OXAZEPAM [Concomitant]
  10. TAMIFLU [Suspect]
     Indication: INFLUENZA
     Dates: start: 20120301
  11. ALVEDON [Concomitant]
  12. WARFARIN SODIUM [Concomitant]
  13. FUROSEMIDE [Concomitant]

REACTIONS (1)
  - HALLUCINATION [None]
